FAERS Safety Report 9238499 (Version 1)
Quarter: 2013Q2

REPORT INFORMATION
  Report Type: Spontaneous
  Country: US (occurrence: None)
  Receive Date: 20130418
  Receipt Date: 20130418
  Transmission Date: 20140414
  Serious: No
  Sender: FDA-Public Use
  Company Number: None

PATIENT
  Sex: Female

DRUGS (1)
  1. METHYLPREDNISOLONE [Suspect]

REACTIONS (6)
  - Injection site pain [None]
  - Headache [None]
  - Gastrointestinal disorder [None]
  - Fungal infection [None]
  - Oral candidiasis [None]
  - Fungal infection [None]
